FAERS Safety Report 6892435-2 (Version None)
Quarter: 2010Q3

REPORT INFORMATION
  Report Type: 
  Country: None (occurrence: None)
  Receive Date: 20100731
  Receipt Date: 20080707
  Transmission Date: 20110219
  Serious: No
  Sender: FDA-Public Use
  Company Number: US-PFIZER INC-2008045223

PATIENT
  Sex: Male

DRUGS (3)
  1. NORVASC [Suspect]
     Indication: HYPERTENSION
     Dates: start: 20080520
  2. BETA BLOCKING AGENTS [Concomitant]
  3. DRUG, UNSPECIFIED [Concomitant]

REACTIONS (5)
  - ABDOMINAL PAIN UPPER [None]
  - BALANCE DISORDER [None]
  - FATIGUE [None]
  - INSOMNIA [None]
  - MUSCULOSKELETAL DISCOMFORT [None]
